FAERS Safety Report 14934576 (Version 1)
Quarter: 2018Q2

REPORT INFORMATION
  Report Type: Spontaneous
  Country: US (occurrence: US)
  Receive Date: 20180524
  Receipt Date: 20180524
  Transmission Date: 20180711
  Serious: Yes (Life-Threatening, Hospitalization, Other)
  Sender: FDA-Public Use
  Company Number: US-SAOL THERAPEUTICS-0700766104

PATIENT
  Age: 54 Year
  Sex: Female

DRUGS (4)
  1. HYDROMORPHONE [Suspect]
     Active Substance: HYDROMORPHONE
     Route: 037
  2. HYDROMORPHONE [Suspect]
     Active Substance: HYDROMORPHONE
     Dosage: 0.168 MG, \DAY
     Route: 037
  3. BACLOFEN. [Suspect]
     Active Substance: BACLOFEN
     Route: 037
  4. COMPOUNDED BACLOFEN [Suspect]
     Active Substance: BACLOFEN
     Indication: MUSCLE SPASTICITY
     Dosage: 96 ?G, \DAY
     Route: 037

REACTIONS (13)
  - Drug withdrawal syndrome [Unknown]
  - Hypertension [Unknown]
  - Overdose [Unknown]
  - Mental status changes [Unknown]
  - Nausea [Unknown]
  - Muscle spasticity [Unknown]
  - Quadriplegia [Unknown]
  - Pain [Unknown]
  - Device malfunction [Unknown]
  - Cardio-respiratory arrest [Unknown]
  - Speech disorder [Unknown]
  - Therapy non-responder [Unknown]
  - Influenza like illness [Unknown]

NARRATIVE: CASE EVENT DATE: 20141028
